FAERS Safety Report 25228936 (Version 2)
Quarter: 2025Q3

REPORT INFORMATION
  Report Type: Spontaneous
  Country: EU (occurrence: EU)
  Receive Date: 20250423
  Receipt Date: 20250802
  Transmission Date: 20251021
  Serious: Yes (Other)
  Sender: ALEXION PHARMACEUTICALS
  Company Number: None

PATIENT
  Age: 79 Year
  Sex: Female

DRUGS (1)
  1. TAGRISSO [Suspect]
     Active Substance: OSIMERTINIB
     Dosage: 1X1
     Dates: start: 20230529, end: 20250414

REACTIONS (2)
  - Oxygen saturation decreased [Unknown]
  - Idiopathic interstitial pneumonia [Not Recovered/Not Resolved]

NARRATIVE: CASE EVENT DATE: 20250201
